FAERS Safety Report 7805265-1 (Version None)
Quarter: 2011Q4

REPORT INFORMATION
  Report Type: 
  Country: None (occurrence: None)
  Receive Date: 20111010
  Receipt Date: 20111003
  Transmission Date: 20120403
  Serious: Yes (Disabling, Other)
  Sender: FDA-Public Use
  Company Number: IE-PFIZER INC-2011218120

PATIENT
  Sex: Female

DRUGS (10)
  1. BECLOMETHASONE DIPROPIONATE [Concomitant]
     Dosage: 2 PUFFS 2X/DAY
     Dates: start: 20100101
  2. LEXAPRO [Concomitant]
     Indication: DEPRESSION
     Dosage: 25 UG, AT NIGHT
     Route: 048
     Dates: start: 20070101
  3. EZETIMIBE/SIMVASTATIN [Concomitant]
     Indication: HYPERCHOLESTEROLAEMIA
     Dosage: 20 MG, UNK
     Route: 048
     Dates: start: 20090908
  4. TOVIAZ [Suspect]
     Indication: HYPERTONIC BLADDER
     Dosage: 4 MG, 1X/DAY
     Route: 048
     Dates: start: 20110907, end: 20110910
  5. ALLOPURINOL [Concomitant]
     Indication: GOUT
     Dosage: 200 MG, 1X/DAY
     Route: 048
     Dates: start: 20090119
  6. EFFEXOR XR [Concomitant]
     Dosage: 112.5 MG, 1X/DAY
     Route: 048
     Dates: start: 20090301
  7. SALBUTAMOL [Concomitant]
     Dosage: 2 PUFFS 4X/DAY AS NEEDED
     Dates: start: 20090101
  8. LEVOTHYROXINE SODIUM [Concomitant]
     Indication: HYPOTHYROIDISM
     Dosage: 75/100UG
     Route: 048
     Dates: start: 19930101
  9. GLUCOSAMINE [Concomitant]
     Indication: ARTHRITIS
     Dosage: 500 MG, 3X/DAY
     Route: 048
     Dates: start: 20090101
  10. DIAZEPAM [Concomitant]
     Dosage: 2 MG, 2X/DAY
     Route: 048
     Dates: start: 19930101

REACTIONS (3)
  - DYSPNOEA [None]
  - WHEEZING [None]
  - BRONCHOSPASM [None]
